FAERS Safety Report 25572121 (Version 1)
Quarter: 2025Q3

REPORT INFORMATION
  Report Type: Spontaneous
  Country: US (occurrence: US)
  Receive Date: 20250717
  Receipt Date: 20250717
  Transmission Date: 20251021
  Serious: Yes (Hospitalization, Other)
  Sender: SANOFI AVENTIS
  Company Number: US-SA-2025SA198475

PATIENT
  Age: 91 Year
  Sex: Female

DRUGS (10)
  1. DUPIXENT [Suspect]
     Active Substance: DUPILUMAB
     Indication: Asthma
     Route: 058
  2. ACETAMINOPHEN [Concomitant]
     Active Substance: ACETAMINOPHEN
  3. ATORVASTATIN [Concomitant]
     Active Substance: ATORVASTATIN
  4. BUDESONIDE [Concomitant]
     Active Substance: BUDESONIDE
  5. DOFETILIDE [Concomitant]
     Active Substance: DOFETILIDE
  6. ELIQUIS [Concomitant]
     Active Substance: APIXABAN
  7. FARXIGA [Concomitant]
     Active Substance: DAPAGLIFLOZIN PROPANEDIOL
  8. FUROSEMIDE [Concomitant]
     Active Substance: FUROSEMIDE
  9. IPRATROPIUM [Concomitant]
     Active Substance: IPRATROPIUM
  10. ALBUTEROL SULFATE [Concomitant]
     Active Substance: ALBUTEROL SULFATE

REACTIONS (3)
  - Pneumonia [Unknown]
  - Infective exacerbation of asthma [Unknown]
  - Impaired quality of life [Unknown]

NARRATIVE: CASE EVENT DATE: 20250101
